FAERS Safety Report 4979329-4 (Version None)
Quarter: 2006Q2

REPORT INFORMATION
  Report Type: 
  Country: None (occurrence: None)
  Receive Date: 20060421
  Receipt Date: 20051221
  Transmission Date: 20061013
  Serious: Yes (Hospitalization)
  Sender: FDA-Public Use
  Company Number: US-MERCK-0512USA03645

PATIENT
  Age: 51 Year
  Sex: Male
  Weight: 130 kg

DRUGS (15)
  1. VIOXX [Suspect]
     Indication: ARTHRITIS
     Route: 048
     Dates: start: 20000101, end: 20040601
  2. TYLENOL W/ CODEINE NO. 3 [Concomitant]
     Indication: PAIN
     Route: 065
  3. SYNTHROID [Concomitant]
     Indication: HYPERTHYROIDISM
     Route: 065
     Dates: start: 20020101
  4. BETAMETHASONE [Concomitant]
     Route: 065
  5. FLUOCINONIDE [Concomitant]
     Route: 065
  6. LIPITOR [Concomitant]
     Indication: BLOOD CHOLESTEROL INCREASED
     Route: 065
     Dates: start: 20020101, end: 20040101
  7. DIGITEK [Concomitant]
     Route: 065
  8. PROPAFENONE HYDROCHLORIDE [Concomitant]
     Route: 065
  9. WARFARIN [Concomitant]
     Route: 065
  10. BENICAR [Concomitant]
     Indication: HYPERTENSION
     Route: 065
  11. HYDRODIURIL [Concomitant]
     Route: 065
  12. VYTORIN [Concomitant]
     Indication: BLOOD CHOLESTEROL INCREASED
     Route: 048
     Dates: start: 20040101
  13. BEXTRA [Concomitant]
     Route: 065
  14. MOBIC [Concomitant]
     Route: 065
  15. ACTOS [Concomitant]
     Route: 065

REACTIONS (7)
  - BLOOD CHOLESTEROL INCREASED [None]
  - CARDIOVASCULAR DISORDER [None]
  - DIABETES MELLITUS [None]
  - HYPERTENSION [None]
  - INJURY [None]
  - MYOCARDIAL INFARCTION [None]
  - THYROID DISORDER [None]
